FAERS Safety Report 4433228-5 (Version None)
Quarter: 2004Q3

REPORT INFORMATION
  Report Type: 
  Country: None (occurrence: None)
  Receive Date: 20040823
  Receipt Date: 20040819
  Transmission Date: 20050211
  Serious: Yes (Hospitalization)
  Sender: FDA-Public Use
  Company Number: TCI2004A02879

PATIENT
  Age: 63 Year
  Sex: Female

DRUGS (15)
  1. LANSOPRAZOLE [Suspect]
     Indication: GASTRIC ULCER
     Dosage: 30 MG (30 MG, 1 IN 1 D) PER ORAL
     Route: 048
     Dates: start: 20040316, end: 20040412
  2. LASIX [Suspect]
     Indication: CARDIAC FAILURE
     Dosage: 20 MG (20 MG, 1 IN 1 D)  PER ORAL
     Route: 048
     Dates: start: 20040306, end: 20040412
  3. MUCOSTA (REBAMIPIDE) (TABLETS) [Suspect]
     Indication: GASTRIC ULCER
     Dosage: 300 MG (100 MG, 3 IN 1 D) PER ORAL
     Route: 048
     Dates: start: 20040315, end: 20040412
  4. NORVASC [Suspect]
     Indication: HYPERTENSION
     Dosage: 10 MG (10 MG, 1 IN 1 D) PER ORAL
     Route: 048
     Dates: start: 20040316, end: 20040412
  5. FERROMIA (FERROUS CITRATE) (TABLETS) [Suspect]
     Indication: IRON DEFICIENCY ANAEMIA
     Dosage: 50 MG (50 MG, 1 IN 1 D) PER ORAL
     Route: 048
     Dates: start: 20040316, end: 20040412
  6. ONON (PRANLUKAST) [Concomitant]
  7. THEO-DUR [Concomitant]
  8. MINIPRESS [Concomitant]
  9. LOXONIN (LOXOPROFEN SODIUM) [Concomitant]
  10. DEPAS (ESTIZOLAM) [Concomitant]
  11. METHYCOBAL (MECOBALAMIN) [Concomitant]
  12. GRANDAXIN (TOFISOPAM) [Concomitant]
  13. HALCION [Concomitant]
  14. DORAL [Concomitant]
  15. PREDNISOLONE [Concomitant]

REACTIONS (7)
  - BLOOD GLUCOSE INCREASED [None]
  - DECREASED APPETITE [None]
  - GASTRIC ULCER [None]
  - LYMPHOCYTE STIMULATION TEST POSITIVE [None]
  - NAUSEA [None]
  - RENAL FAILURE ACUTE [None]
  - TUBULOINTERSTITIAL NEPHRITIS [None]
